FAERS Safety Report 8289814-8 (Version None)
Quarter: 2012Q2

REPORT INFORMATION
  Report Type: 
  Country: None (occurrence: None)
  Receive Date: 20120417
  Receipt Date: 20120413
  Transmission Date: 20120825
  Serious: No
  Sender: FDA-Public Use
  Company Number: US-PFIZER INC-2012092895

PATIENT
  Sex: Female
  Weight: 58.957 kg

DRUGS (3)
  1. ATORVASTATIN CALCIUM [Suspect]
     Indication: BLOOD CHOLESTEROL INCREASED
     Dosage: 20 MG, 1X/DAY
     Route: 048
     Dates: start: 20120319
  2. CALTRATE 600+D SOFT CHEW [Concomitant]
     Dosage: UNK
  3. VITAMIN-MINERAL COMPOUND TAB [Suspect]
     Indication: VITAMIN SUPPLEMENTATION
     Dosage: UNK, 1X/DAY
     Route: 048
     Dates: start: 20120101, end: 20120409

REACTIONS (2)
  - DIZZINESS [None]
  - BLOOD CHOLESTEROL INCREASED [None]
